FAERS Safety Report 6977146-7 (Version None)
Quarter: 2010Q3

REPORT INFORMATION
  Report Type: 
  Country: None (occurrence: None)
  Receive Date: 20100910
  Receipt Date: 20100830
  Transmission Date: 20110219
  Serious: Yes (Other)
  Sender: FDA-Public Use
  Company Number: IL-WATSON-2010-11784

PATIENT
  Age: 60 Year
  Sex: Female

DRUGS (3)
  1. FUROSEMIDE (WATSON LABORATORIES) [Suspect]
     Indication: WEIGHT DECREASED
     Dosage: 1000 MG, DAILY
     Route: 048
  2. ORLISTAT [Suspect]
     Indication: WEIGHT DECREASED
     Dosage: 120 - 240 MG, DAILY
  3. ETORICOXIB [Suspect]
     Indication: MONARTHRITIS
     Dosage: 90 MG, DAILY

REACTIONS (6)
  - CALCINOSIS [None]
  - DRUG ABUSE [None]
  - KIDNEY FIBROSIS [None]
  - RENAL FAILURE [None]
  - RENAL TUBULAR DISORDER [None]
  - RENAL TUBULAR NECROSIS [None]
